FAERS Safety Report 6945562-5 (Version None)
Quarter: 2010Q3

REPORT INFORMATION
  Report Type: 
  Country: None (occurrence: None)
  Receive Date: 20100819
  Receipt Date: 20100807
  Transmission Date: 20110219
  Serious: Yes (Hospitalization, Other)
  Sender: FDA-Public Use
  Company Number: 2010AP001707

PATIENT
  Age: 52 Year
  Sex: Female

DRUGS (8)
  1. DILTIAZEM HCL [Suspect]
     Dosage: 180 MG; QD; PO
     Route: 048
  2. RITONAVIR [Suspect]
     Dosage: 2 TAB; BID
  3. LOPINAVIR [Suspect]
     Dosage: 2 TAB; BID
  4. CLONIDINE [Suspect]
     Dosage: 0.2 MG; TID; 0.2 MG; BID; PO
     Route: 048
  5. METOPROLOL TARTRATE [Suspect]
     Dosage: 200 MG; BID; 100 MG; BID; 200 MG
  6. LABETALOL HCL [Suspect]
     Dosage: 20 MG; IV
     Route: 042
  7. HYDRALAZINE [Suspect]
  8. NIFEDIPINE [Suspect]
     Dosage: 60 MG; PO
     Route: 048

REACTIONS (8)
  - BLOOD PRESSURE INCREASED [None]
  - CONFUSIONAL STATE [None]
  - DEPRESSED LEVEL OF CONSCIOUSNESS [None]
  - DRUG INTERACTION [None]
  - ELECTROCARDIOGRAM PR PROLONGATION [None]
  - ELECTROCARDIOGRAM QRS COMPLEX SHORTENED [None]
  - HYPOTENSION [None]
  - MULTIPLE DRUG OVERDOSE [None]
